FAERS Safety Report 8048558-8 (Version None)
Quarter: 2012Q1

REPORT INFORMATION
  Report Type: 
  Country: None (occurrence: None)
  Receive Date: 20120117
  Receipt Date: 20120109
  Transmission Date: 20120608
  Serious: Yes (Hospitalization)
  Sender: FDA-Public Use
  Company Number: US-BAYER-2010-000975

PATIENT
  Age: 23 Year
  Sex: Female
  Weight: 44.444 kg

DRUGS (11)
  1. ZANTAC [Concomitant]
     Dosage: UNK
     Route: 048
     Dates: start: 20041221
  2. YASMIN [Suspect]
     Indication: CONTRACEPTION
     Dosage: UNK
     Route: 048
     Dates: start: 20021101, end: 20030201
  3. PRILOSEC [Concomitant]
     Dosage: 20 MG, BID
     Route: 048
     Dates: start: 20041110
  4. CLINDAMYCIN [Concomitant]
     Indication: ACNE
     Dosage: DAILY
     Route: 061
     Dates: start: 20041221
  5. CALCIUM [Concomitant]
     Dosage: DAILY
     Route: 048
     Dates: start: 20041221
  6. MAGNESIUM HYDROXIDE TAB [Concomitant]
     Dosage: UNK UNK, PRN
     Route: 048
     Dates: start: 20041221
  7. MULTI-VITAMIN [Concomitant]
     Dosage: DAILY
     Route: 048
     Dates: start: 20041221
  8. VITAMIN C [Concomitant]
     Dosage: DAILY
     Route: 048
     Dates: start: 20041221
  9. DEPO-PROVERA [Concomitant]
  10. NEXIUM [Concomitant]
     Dosage: 40 MG, DAILY
     Route: 048
     Dates: start: 20041117
  11. OMNICEF [Concomitant]
     Indication: SINUSITIS
     Dosage: 300 MG, BID
     Route: 048
     Dates: start: 20041221

REACTIONS (3)
  - BILIARY DYSKINESIA [None]
  - GALLBLADDER INJURY [None]
  - CHOLECYSTITIS ACUTE [None]
